FAERS Safety Report 11694474 (Version 2)
Quarter: 2016Q1

REPORT INFORMATION
  Report Type: Spontaneous
  Country: FR (occurrence: FR)
  Receive Date: 20151103
  Receipt Date: 20160226
  Transmission Date: 20160525
  Serious: Yes (Congenital Anomaly)
  Sender: FDA-Public Use
  Company Number: FR-ELI_LILLY_AND_COMPANY-FR201510007182

PATIENT
  Sex: Female

DRUGS (2)
  1. LEVOTHYROX [Concomitant]
     Active Substance: LEVOTHYROXINE
     Dosage: 100 UG, UNKNOWN
     Route: 064
     Dates: end: 20140815
  2. ZYPREXA [Suspect]
     Active Substance: OLANZAPINE
     Indication: BIPOLAR DISORDER
     Dosage: 5 MG, UNKNOWN
     Route: 064
     Dates: end: 20140815

REACTIONS (1)
  - Congenital hypothyroidism [Not Recovered/Not Resolved]
